FAERS Safety Report 25467274 (Version 1)
Quarter: 2025Q2

REPORT INFORMATION
  Report Type: Spontaneous
  Country: US (occurrence: None)
  Receive Date: 20250620
  Receipt Date: 20250620
  Transmission Date: 20250717
  Serious: Yes (Death, Hospitalization)
  Sender: FDA-CTU
  Company Number: None

PATIENT
  Age: 57 Year
  Sex: Female

DRUGS (1)
  1. TECARTUS [Suspect]
     Active Substance: BREXUCABTAGENE AUTOLEUCEL
     Route: 042
     Dates: start: 20250428, end: 20250428

REACTIONS (17)
  - Cytokine release syndrome [None]
  - Lymphadenopathy [None]
  - Lymphadenopathy mediastinal [None]
  - Hepatomegaly [None]
  - Splenomegaly [None]
  - Lymphocytosis [None]
  - Human rhinovirus test positive [None]
  - Enterovirus test positive [None]
  - Lung opacity [None]
  - Infection [None]
  - Pneumonia [None]
  - Atelectasis [None]
  - Breast mass [None]
  - Generalised oedema [None]
  - Blood lactate dehydrogenase increased [None]
  - Lymphoma [None]
  - Hepatic function abnormal [None]
